FAERS Safety Report 8803630 (Version 2)
Quarter: 2013Q2

REPORT INFORMATION
  Report Type: Spontaneous
  Country: US (occurrence: US)
  Receive Date: 20120924
  Receipt Date: 20130521
  Transmission Date: 20140414
  Serious: No
  Sender: FDA-Public Use
  Company Number: US-009507513-1209USA002026

PATIENT
  Age: 55 Year
  Sex: Male
  Weight: 108 kg

DRUGS (9)
  1. VICTRELIS [Suspect]
     Indication: HEPATITIS C
     Dosage: 800 MG, TID
     Route: 048
     Dates: start: 20120901
  2. REBETOL [Suspect]
     Indication: HEPATITIS C
     Dosage: 400 MG, BID
     Route: 048
     Dates: start: 20120803
  3. PEGASYS [Suspect]
     Indication: HEPATITIS C
     Dosage: 180 MICROGRAM, UNK
     Dates: start: 20120803
  4. BUPROPION HYDROCHLORIDE [Concomitant]
     Dosage: 75 UNK, UNK
  5. CITALOPRAM [Concomitant]
     Dosage: 40 MG, UNK
  6. OXYCODONE [Concomitant]
     Dosage: 15 MG, Q6H
  7. VALSARTAN [Concomitant]
     Dosage: UNK
  8. LOPERAMIDE HYDROCHLORIDE [Concomitant]
     Dosage: 2 MG, BID
  9. ALPROSTADIL [Concomitant]
     Dosage: 1000 MG, UNK

REACTIONS (11)
  - Disturbance in attention [Unknown]
  - Anorectal discomfort [Unknown]
  - Photosensitivity reaction [Unknown]
  - White blood cell count decreased [Unknown]
  - Headache [Unknown]
  - Depression [Unknown]
  - Rash [Unknown]
  - Dysgeusia [Unknown]
  - Anaemia [Recovered/Resolved]
  - Dysgeusia [Unknown]
  - Fatigue [Unknown]
